FAERS Safety Report 7327413-2 (Version None)
Quarter: 2011Q1

REPORT INFORMATION
  Report Type: 
  Country: None (occurrence: None)
  Receive Date: 20110303
  Receipt Date: 20110223
  Transmission Date: 20110831
  Serious: Yes (Other)
  Sender: FDA-Public Use
  Company Number: US-ASTRAZENECA-2007UW02015

PATIENT
  Age: 401 Month
  Sex: Female
  Weight: 103.9 kg

DRUGS (5)
  1. SEROQUEL [Suspect]
     Indication: DEPRESSION
     Route: 048
     Dates: start: 20020501
  2. SEROQUEL [Suspect]
     Dosage: 100 MG - 800 MG PER DAY
     Route: 048
     Dates: start: 20020516
  3. METFORMIN [Concomitant]
     Indication: DIABETES MELLITUS
  4. NOVOLIN 70/30 [Concomitant]
     Indication: DIABETES MELLITUS
     Dosage: 35 - 55 UNITS
  5. LIPITOR [Concomitant]
     Route: 048
     Dates: start: 20030601

REACTIONS (4)
  - HYPOGLYCAEMIA [None]
  - DIABETES MELLITUS [None]
  - NEUROPATHY PERIPHERAL [None]
  - TYPE 1 DIABETES MELLITUS [None]
